FAERS Safety Report 11218770 (Version 5)
Quarter: 2015Q4

REPORT INFORMATION
  Report Type: Spontaneous
  Country: JP (occurrence: JP)
  Receive Date: 20150625
  Receipt Date: 20151123
  Transmission Date: 20160304
  Serious: Yes (Death, Life-Threatening, Hospitalization, Other)
  Sender: FDA-Public Use
  Company Number: JP-PFIZER INC-2015208042

PATIENT
  Age: 80 Year
  Sex: Male
  Weight: 53 kg

DRUGS (2)
  1. XALKORI [Suspect]
     Active Substance: CRIZOTINIB
     Dosage: 250 MG, 2X/DAY
     Route: 048
     Dates: start: 20150609, end: 20150613
  2. XALKORI [Suspect]
     Active Substance: CRIZOTINIB
     Indication: LUNG ADENOCARCINOMA
     Dosage: 250 MG, 2X/DAY
     Route: 048
     Dates: start: 20150414, end: 20150420

REACTIONS (7)
  - Acute respiratory failure [Fatal]
  - Diffuse alveolar damage [Fatal]
  - Rectal ulcer haemorrhage [Unknown]
  - Platelet count decreased [Not Recovered/Not Resolved]
  - Haematochezia [Unknown]
  - Cardiac failure [Unknown]
  - Rectal perforation [Unknown]

NARRATIVE: CASE EVENT DATE: 201506
